FAERS Safety Report 10675619 (Version 2)
Quarter: 2015Q4

REPORT INFORMATION
  Report Type: Spontaneous
  Country: US (occurrence: US)
  Receive Date: 20141224
  Receipt Date: 20151107
  Transmission Date: 20160304
  Serious: No
  Sender: FDA-Public Use
  Company Number: US-BAUSCH-SYM-2014-17278

PATIENT
  Sex: Female
  Weight: 65.83 kg

DRUGS (2)
  1. XENAZINE [Suspect]
     Active Substance: TETRABENAZINE
     Route: 048
     Dates: start: 20130718
  2. XENAZINE [Suspect]
     Active Substance: TETRABENAZINE
     Indication: EXTRAPYRAMIDAL DISORDER
     Dosage: HALF TABLET IN AM, ? TABLET AT NOON, 1 TABLET LATER IN THE DAY
     Route: 048
     Dates: start: 200901

REACTIONS (3)
  - Off label use [Unknown]
  - Weight increased [Not Recovered/Not Resolved]
  - Depression [Unknown]
